FAERS Safety Report 6043498-8 (Version None)
Quarter: 2009Q1

REPORT INFORMATION
  Report Type: 
  Country: None (occurrence: None)
  Receive Date: 20090115
  Receipt Date: 20090115
  Transmission Date: 20090719
  Serious: Yes (Hospitalization)
  Sender: FDA-Public Use
  Company Number: None

PATIENT
  Age: 84 Year
  Sex: Male
  Weight: 64.4 kg

DRUGS (7)
  1. ASPIRIN [Suspect]
     Indication: CARDIAC VALVE DISEASE
     Dosage: DAILY PO CHRONIC
     Route: 048
  2. SAL-TROPINE [Concomitant]
  3. LISINOPRIL [Concomitant]
  4. REMERON [Concomitant]
  5. DIOVAN [Concomitant]
  6. ABILIFY [Concomitant]
  7. FLOMAX [Concomitant]

REACTIONS (4)
  - ANAEMIA [None]
  - HAEMATEMESIS [None]
  - SYNCOPE [None]
  - UPPER GASTROINTESTINAL HAEMORRHAGE [None]
